FAERS Safety Report 14930760 (Version 1)
Quarter: 2018Q2

REPORT INFORMATION
  Report Type: Spontaneous
  Country: FR (occurrence: FR)
  Receive Date: 20180523
  Receipt Date: 20180523
  Transmission Date: 20180711
  Serious: Yes (Other)
  Sender: FDA-Public Use
  Company Number: FR-MERCK KGAA-2048345

PATIENT
  Age: 40 Year
  Sex: Female

DRUGS (2)
  1. NOVOTHYROX [Suspect]
     Active Substance: LEVOTHYROXINE SODIUM
     Indication: HYPOTHYROIDISM
     Route: 048
  2. NOVOTHYROX [Suspect]
     Active Substance: LEVOTHYROXINE SODIUM
     Route: 048
     Dates: start: 201709, end: 2017

REACTIONS (26)
  - Asthenia [Recovering/Resolving]
  - Acne [Recovering/Resolving]
  - Depression [Recovering/Resolving]
  - Nightmare [Not Recovered/Not Resolved]
  - Self esteem decreased [Not Recovered/Not Resolved]
  - Social avoidant behaviour [Not Recovered/Not Resolved]
  - Personal relationship issue [None]
  - Time perception altered [None]
  - Loss of personal independence in daily activities [None]
  - Hypokinesia [Not Recovered/Not Resolved]
  - Chills [Recovering/Resolving]
  - Diarrhoea [Recovering/Resolving]
  - Mental impairment [Not Recovered/Not Resolved]
  - Fatigue [Not Recovered/Not Resolved]
  - Eating disorder [Not Recovered/Not Resolved]
  - Thyroxine free increased [Recovered/Resolved]
  - Negative thoughts [Not Recovered/Not Resolved]
  - Aggression [Not Recovered/Not Resolved]
  - Insomnia [Recovering/Resolving]
  - Gastrointestinal disorder [Recovering/Resolving]
  - Head discomfort [Not Recovered/Not Resolved]
  - Mood swings [Recovering/Resolving]
  - Myalgia [None]
  - Indifference [Recovering/Resolving]
  - Poor quality sleep [Not Recovered/Not Resolved]
  - Crying [Recovering/Resolving]

NARRATIVE: CASE EVENT DATE: 201708
